FAERS Safety Report 10140220 (Version 3)
Quarter: 2016Q3

REPORT INFORMATION
  Report Type: Report from Study
  Country: DE (occurrence: DE)
  Receive Date: 20140429
  Receipt Date: 20160727
  Transmission Date: 20161108
  Serious: Yes (Death)
  Sender: FDA-Public Use
  Company Number: DE-SA-2014SA054820

PATIENT
  Age: 76 Year
  Sex: Female
  Weight: 71 kg

DRUGS (5)
  1. FLUDARABINE PHOSPHATE. [Suspect]
     Active Substance: FLUDARABINE PHOSPHATE
     Indication: T-CELL PROLYMPHOCYTIC LEUKAEMIA
     Route: 042
     Dates: start: 20120207, end: 20130418
  2. MITOXANTRONE [Suspect]
     Active Substance: MITOXANTRONE HYDROCHLORIDE
     Indication: T-CELL PROLYMPHOCYTIC LEUKAEMIA
     Route: 042
     Dates: start: 20120207, end: 20130418
  3. ALEMTUZUMAB [Suspect]
     Active Substance: ALEMTUZUMAB
     Indication: T-CELL PROLYMPHOCYTIC LEUKAEMIA
     Route: 058
     Dates: start: 20120928, end: 20130418
  4. HYDROXYCARBAMIDE [Concomitant]
     Active Substance: HYDROXYUREA
     Route: 048
     Dates: start: 201402, end: 20140217
  5. CYCLOPHOSPHAMIDE. [Suspect]
     Active Substance: CYCLOPHOSPHAMIDE
     Indication: T-CELL PROLYMPHOCYTIC LEUKAEMIA
     Route: 042
     Dates: start: 20120207, end: 20130418

REACTIONS (1)
  - Acute myeloid leukaemia [Fatal]

NARRATIVE: CASE EVENT DATE: 20131220
